FAERS Safety Report 16057283 (Version 1)
Quarter: 2019Q1

REPORT INFORMATION
  Report Type: Spontaneous
  Country: US (occurrence: US)
  Receive Date: 20190311
  Receipt Date: 20190311
  Transmission Date: 20190418
  Serious: Yes (Other)
  Sender: FDA-Public Use
  Company Number: US-SA-2019SA065637

PATIENT
  Sex: Female

DRUGS (1)
  1. DULCOLAX (BISACODYL) [Suspect]
     Active Substance: BISACODYL
     Dosage: UNK
     Dates: start: 201903

REACTIONS (4)
  - Abdominal discomfort [Unknown]
  - Large intestinal obstruction [Unknown]
  - Bowel movement irregularity [Unknown]
  - Unevaluable event [Unknown]
